FAERS Safety Report 5688931-6 (Version None)
Quarter: 2008Q1

REPORT INFORMATION
  Report Type: 
  Country: None (occurrence: None)
  Receive Date: 20080331
  Receipt Date: 20080320
  Transmission Date: 20080703
  Serious: Yes (Other)
  Sender: FDA-Public Use
  Company Number: US-JNJFOC-20080305942

PATIENT
  Age: 30 Year
  Sex: Male

DRUGS (1)
  1. ULTRAM ER [Suspect]
     Indication: PAIN
     Route: 048

REACTIONS (5)
  - DIZZINESS [None]
  - MEDICATION ERROR [None]
  - PRURITUS [None]
  - URINARY RETENTION [None]
  - VOMITING [None]
